FAERS Safety Report 17058343 (Version 2)
Quarter: 2019Q4

REPORT INFORMATION
  Report Type: Spontaneous
  Country: US (occurrence: US)
  Receive Date: 20191121
  Receipt Date: 20191223
  Transmission Date: 20200122
  Serious: No
  Sender: FDA-Public Use
  Company Number: US-IGSA-SR10009426

PATIENT
  Age: 71 Year
  Sex: Female

DRUGS (23)
  1. NATURE-THROID [Concomitant]
     Active Substance: THYROID, PORCINE
     Dosage: 65 MG, UNK
     Route: 048
  2. BENADRYL [Concomitant]
     Active Substance: DIPHENHYDRAMINE HYDROCHLORIDE
     Dosage: UNK
     Dates: start: 20191106, end: 20191106
  3. DHEA [Concomitant]
     Active Substance: PRASTERONE
     Dosage: 25 MG, UNK
  4. DIPHENHYDRAMINE                    /00000402/ [Concomitant]
     Active Substance: DIPHENHYDRAMINE
     Dosage: 25 MG, UNK
     Route: 048
  5. GAMUNEX-C [Suspect]
     Active Substance: HUMAN IMMUNOGLOBULIN G
     Dosage: 7.5 G, Q.WK.
     Route: 042
     Dates: start: 201910
  6. GASTRACIN [Concomitant]
     Route: 048
  7. VITAMIN K [Concomitant]
     Active Substance: PHYTONADIONE
     Dosage: 100 ?G, UNK
     Route: 048
  8. TYLENOL [Concomitant]
     Active Substance: ACETAMINOPHEN
     Indication: PREMEDICATION
     Dosage: UNK
     Dates: start: 20191106, end: 20191106
  9. GAMUNEX-C [Suspect]
     Active Substance: HUMAN IMMUNOGLOBULIN G
     Indication: IMMUNODEFICIENCY COMMON VARIABLE
     Dosage: 7.5 G, Q.WK.
     Route: 042
  10. GAMUNEX-C [Suspect]
     Active Substance: HUMAN IMMUNOGLOBULIN G
     Dosage: 8 G, Q.WK.
     Route: 058
     Dates: start: 20191209
  11. CARNOSINE [Concomitant]
     Active Substance: CARNOSINE
  12. CYANOCOBALAMIN. [Concomitant]
     Active Substance: CYANOCOBALAMIN
     Dosage: 2000 ?G, UNK
  13. INTRINSI B12/FOLATE [Concomitant]
     Route: 048
  14. KRILL OIL [Concomitant]
     Active Substance: DIETARY SUPPLEMENT\KRILL OIL
     Dosage: 1000 MG, UNK
     Route: 048
  15. HORSE CHESTNUT EXTRACT [Concomitant]
     Active Substance: HORSE CHESTNUT
     Dosage: 300 MG, UNK
     Route: 048
  16. CO Q 10                            /00517201/ [Concomitant]
     Dosage: 100 MG, UNK
     Route: 048
  17. FORSKOLIN [Concomitant]
     Active Substance: COLFORSIN
  18. MELATONIN                          /07129401/ [Concomitant]
     Active Substance: CALCIUM\IRON\MELATONIN\PYRIDOXINE HYDROCHLORIDE
     Dosage: 5 MG, UNK
     Route: 048
  19. VITAMIN D3 [Concomitant]
     Active Substance: CHOLECALCIFEROL
     Dosage: 1000000 IU, UNK
  20. GAMUNEX-C [Suspect]
     Active Substance: HUMAN IMMUNOGLOBULIN G
     Dosage: 7.5 G, Q.WK.
     Route: 042
     Dates: start: 20191106, end: 20191106
  21. DIGESTIVE ENZYME [Concomitant]
     Active Substance: UNSPECIFIED INGREDIENT
     Route: 048
  22. GABAPENTIN. [Concomitant]
     Active Substance: GABAPENTIN
     Dosage: 800 MG, UNK
     Route: 048
  23. VITAMIN C [Concomitant]
     Active Substance: ASCORBIC ACID
     Dosage: 500 MG, UNK
     Route: 048

REACTIONS (16)
  - Eye pruritus [Recovered/Resolved]
  - Renal pain [Recovered/Resolved]
  - Abdominal distension [Recovered/Resolved]
  - Cough [Recovered/Resolved]
  - Urine output decreased [Recovered/Resolved]
  - Sneezing [Recovered/Resolved]
  - Nasal congestion [Recovered/Resolved]
  - Vulvovaginal burning sensation [Recovered/Resolved]
  - Throat irritation [Recovered/Resolved]
  - Discomfort [Recovered/Resolved]
  - Fatigue [Recovered/Resolved]
  - Headache [Recovered/Resolved]
  - Musculoskeletal discomfort [Recovered/Resolved]
  - Arthralgia [Recovered/Resolved]
  - Influenza like illness [Recovered/Resolved]
  - Fibromyalgia [Recovered/Resolved]

NARRATIVE: CASE EVENT DATE: 20191209
